FAERS Safety Report 12195201 (Version 1)
Quarter: 2016Q1

REPORT INFORMATION
  Report Type: Spontaneous
  Country: US (occurrence: US)
  Receive Date: 20160321
  Receipt Date: 20160321
  Transmission Date: 20160526
  Serious: No
  Sender: FDA-Public Use
  Company Number: US-TEVA-577976USA

PATIENT
  Sex: Male

DRUGS (1)
  1. NORTRIPTYLINE [Suspect]
     Active Substance: NORTRIPTYLINE
     Route: 048

REACTIONS (5)
  - Dysphonia [Unknown]
  - Product taste abnormal [Unknown]
  - Product physical issue [Unknown]
  - Burning sensation [Unknown]
  - Product odour abnormal [Unknown]

NARRATIVE: CASE EVENT DATE: 20150609
